FAERS Safety Report 4397945-8 (Version None)
Quarter: 2004Q3

REPORT INFORMATION
  Report Type: 
  Country: None (occurrence: None)
  Receive Date: 20040713
  Receipt Date: 20040706
  Transmission Date: 20050211
  Serious: Yes (Other)
  Sender: FDA-Public Use
  Company Number: HQWYE913207JUL04

PATIENT
  Age: 52 Year
  Sex: Female
  Weight: 81.72 kg

DRUGS (7)
  1. EFFEXOR XR [Suspect]
     Indication: DEPRESSION
     Dosage: 150 MG DAILY AND ANOTHER 150 MG IF
     Dates: start: 20031101
  2. LIPITOR [Concomitant]
  3. SEROQUEL (QUETIPINE) [Concomitant]
  4. IBUPROFEN [Concomitant]
  5. CALCIUM WITH VITAMIN D (CALCIUM PHOSPHATE/CALCIUM SODIUM LACTATE/ERGOC [Concomitant]
  6. ATENOLOL [Concomitant]
  7. UNSPECIFIED DIURETIC [Concomitant]

REACTIONS (10)
  - APHASIA [None]
  - BRONCHITIS [None]
  - CONVULSION [None]
  - DYSKINESIA [None]
  - FALL [None]
  - TONGUE BITING [None]
  - TONGUE HAEMORRHAGE [None]
  - TRISMUS [None]
  - UNEVALUABLE EVENT [None]
  - WEIGHT INCREASED [None]
